FAERS Safety Report 7486759-8 (Version None)
Quarter: 2011Q2

REPORT INFORMATION
  Report Type: 
  Country: None (occurrence: None)
  Receive Date: 20110517
  Receipt Date: 20110506
  Transmission Date: 20111010
  Serious: Yes (Other)
  Sender: FDA-Public Use
  Company Number: FR-ELI_LILLY_AND_COMPANY-FR201105002743

PATIENT
  Age: 49 Year
  Sex: Female

DRUGS (2)
  1. ATORVASTATIN CALCIUM [Concomitant]
  2. BYETTA [Suspect]
     Indication: DIABETES MELLITUS
     Dosage: 50 UG, BID

REACTIONS (4)
  - TRANSAMINASES INCREASED [None]
  - HEPATIC STEATOSIS [None]
  - DIABETES MELLITUS INADEQUATE CONTROL [None]
  - OVERDOSE [None]
